FAERS Safety Report 13952242 (Version 4)
Quarter: 2018Q4

REPORT INFORMATION
  Report Type: Report from Study
  Country: None (occurrence: CA)
  Receive Date: 20170911
  Receipt Date: 20181116
  Transmission Date: 20190204
  Serious: Yes (Hospitalization, Other)
  Sender: FDA-Public Use
  Company Number: CA-ABBVIE-17K-028-2094953-00

PATIENT
  Sex: Female

DRUGS (2)
  1. HUMIRA [Suspect]
     Active Substance: ADALIMUMAB
     Indication: CROHN^S DISEASE
     Route: 058
     Dates: start: 20080815
  2. XARELTO [Concomitant]
     Active Substance: RIVAROXABAN
     Indication: PRODUCT USED FOR UNKNOWN INDICATION

REACTIONS (13)
  - Colectomy [Recovered/Resolved]
  - Renal cyst [Recovered/Resolved]
  - Drug dependence [Unknown]
  - Computerised tomogram abdomen abnormal [Unknown]
  - Intestinal anastomosis [Unknown]
  - Dyschezia [Not Recovered/Not Resolved]
  - Anal fistula [Not Recovered/Not Resolved]
  - Vaginal fistula [Not Recovered/Not Resolved]
  - Diarrhoea [Recovering/Resolving]
  - Crohn^s disease [Unknown]
  - Back pain [Unknown]
  - Drug withdrawal syndrome [Recovered/Resolved]
  - Hepatic vein thrombosis [Recovered/Resolved]

NARRATIVE: CASE EVENT DATE: 2017
